FAERS Safety Report 7170796-7 (Version None)
Quarter: 2010Q4

REPORT INFORMATION
  Report Type: 
  Country: None (occurrence: None)
  Receive Date: 20101217
  Receipt Date: 20101215
  Transmission Date: 20110411
  Serious: Yes (Other)
  Sender: FDA-Public Use
  Company Number: DE-SANOFI-AVENTIS-2010SA045373

PATIENT
  Age: 63 Year
  Sex: Male
  Weight: 89 kg

DRUGS (9)
  1. ARAVA [Suspect]
     Route: 048
     Dates: start: 20100510, end: 20100720
  2. PANTOPRAZOLE [Concomitant]
     Route: 065
  3. METFORMIN [Concomitant]
     Route: 065
  4. ORAL ANTIDIABETICS [Concomitant]
     Indication: DIABETES MELLITUS
     Route: 048
     Dates: start: 20100320, end: 20100720
  5. RAMIPRIL [Concomitant]
     Dosage: DAILY DOSE: 5 MG MILLGRAM(S) EVERY DAYS
     Route: 065
  6. DECORTIN-H [Concomitant]
     Dosage: DAILY DOSE: 1 DF DOSAGE FORM EVERY DAYS
     Route: 065
  7. METHOTREXATE [Concomitant]
     Dosage: DAILY DOSE: 20 MG MILLGRAM(S) EVERY WEEKS
     Route: 048
     Dates: start: 20090701
  8. NOVAMIN [Concomitant]
     Route: 065
  9. FOLSAN [Concomitant]
     Dosage: 15/WEEK
     Route: 065

REACTIONS (1)
  - HEPATITIS TOXIC [None]
